FAERS Safety Report 6814347-2 (Version None)
Quarter: 2010Q3

REPORT INFORMATION
  Report Type: 
  Country: None (occurrence: None)
  Receive Date: 20100702
  Receipt Date: 20100621
  Transmission Date: 20110219
  Serious: Yes (Hospitalization)
  Sender: FDA-Public Use
  Company Number: FR-ALEXION-A201000522

PATIENT

DRUGS (9)
  1. SOLIRIS [Suspect]
     Indication: PAROXYSMAL NOCTURNAL HAEMOGLOBINURIA
     Dosage: 600 MG, QW
     Route: 042
     Dates: start: 20091113, end: 20091207
  2. SOLIRIS [Suspect]
     Dosage: 900 MG, Q2W
     Route: 042
     Dates: start: 20091228
  3. COVERSYL                           /00790701/ [Concomitant]
     Indication: HYPERTENSION
     Dosage: 15 UNK, UNK
     Route: 048
     Dates: start: 20081201
  4. CRESTOR [Concomitant]
     Indication: MYOCARDIAL INFARCTION
     Dosage: 20 UNK, UNK
     Route: 048
     Dates: start: 20081201
  5. PLAVIX [Concomitant]
     Dosage: 75 UNK, UNK
     Route: 048
     Dates: start: 20081201
  6. KARDEGIC                           /00002703/ [Concomitant]
     Dosage: 75 UNK, UNK
     Route: 048
     Dates: start: 20081201
  7. ATENOLOL [Concomitant]
     Dosage: 50 UNK, UNK
     Route: 048
     Dates: start: 20081201
  8. PROCORALAN [Concomitant]
     Dosage: 5 UNK, UNK
     Route: 048
     Dates: start: 20081201
  9. CALCIPARINE [Concomitant]
     Dosage: 0.55X2
     Route: 058

REACTIONS (1)
  - BASILAR ARTERY THROMBOSIS [None]
